FAERS Safety Report 8810824 (Version 1)
Quarter: 2012Q4

REPORT INFORMATION
  Report Type: 
  Country: US (occurrence: US)
  Receive Date: 20120927
  Receipt Date: 20120927
  Transmission Date: 20130627
  Serious: Yes (Other)
  Sender: FDA-Public Use
  Company Number: US-MYLANLABS-2011S1021213

PATIENT
  Sex: Female

DRUGS (6)
  1. FOSAMAX [Suspect]
     Indication: OSTEOPOROSIS PROPHYLAXIS
     Dates: start: 1999, end: 2008
  2. FOSAMAX [Suspect]
     Indication: OSTEOPENIA
     Dates: start: 1999, end: 2008
  3. FOSAMAX [Suspect]
     Indication: OSTEOPOROSIS
     Dates: start: 1999, end: 2008
  4. ALENDRONATE SODIUM [Suspect]
     Indication: OSTEOPOROSIS PROPHYLAXIS
     Dates: start: 2008, end: 2010
  5. ALENDRONATE SODIUM [Suspect]
     Indication: OSTEOPENIA
     Dates: start: 2008, end: 2010
  6. ALENDRONATE SODIUM [Suspect]
     Indication: OSTEOPOROSIS
     Dates: start: 2008, end: 2010

REACTIONS (2)
  - Femur fracture [Not Recovered/Not Resolved]
  - Low turnover osteopathy [Not Recovered/Not Resolved]
